FAERS Safety Report 8620548-3 (Version None)
Quarter: 2012Q3

REPORT INFORMATION
  Report Type: 
  Country: None (occurrence: None)
  Receive Date: 20120824
  Receipt Date: 20120816
  Transmission Date: 20120928
  Serious: Yes (Life-Threatening, Hospitalization)
  Sender: FDA-Public Use
  Company Number: MX-VERTEX PHARMACEUTICAL INC.-2012-020051

PATIENT
  Sex: Female
  Weight: 58.5 kg

DRUGS (17)
  1. ERYTHROPOETIN [Concomitant]
     Dosage: ONCE
     Route: 058
     Dates: start: 20110718, end: 20110718
  2. VALSARTAN [Concomitant]
     Indication: HYPERTENSION
     Dosage: 160 MG, QD
     Route: 048
  3. ERYTHROPOETIN [Concomitant]
     Indication: ANAEMIA
     Dosage: ONCE
     Route: 058
     Dates: start: 20110721, end: 20110721
  4. VX-950 [Suspect]
     Indication: HEPATITIS C
     Dosage: 1125 MG, QD
     Dates: start: 20110530, end: 20110822
  5. COPEGUS [Suspect]
     Dosage: 600 MG, UNK
     Route: 048
     Dates: start: 20110831, end: 20111113
  6. PEGASYS [Suspect]
     Dosage: 135 A?G, WEEKLY
     Route: 058
     Dates: start: 20111107, end: 20111107
  7. PEGASYS [Suspect]
     Indication: HEPATITIS C
     Dosage: 135 A?G, WEEKLY
     Route: 058
     Dates: start: 20110701, end: 20111031
  8. NIMODIPINE [Concomitant]
     Indication: HYPERTENSION
     Dosage: 30 MG, QD
     Route: 048
  9. ERYTHROPOETIN [Concomitant]
     Dosage: ONCE
     Route: 058
     Dates: start: 20110715, end: 20110715
  10. PEGASYS [Suspect]
     Dosage: 180 A?G, WEEKLY
     Route: 058
     Dates: start: 20110530, end: 20110630
  11. COPEGUS [Suspect]
     Indication: HEPATITIS C
     Dosage: 1000 MG, UNK
     Route: 048
     Dates: start: 20110530, end: 20110630
  12. COPEGUS [Suspect]
     Dosage: 600 MG, UNK
     Route: 048
     Dates: start: 20110701, end: 20110822
  13. COPEGUS [Suspect]
     Dosage: UNK MG, UNK
     Route: 048
     Dates: start: 20110823, end: 20110830
  14. PEGASYS [Suspect]
     Dosage: 90 A?G, WEEKLY
     Route: 058
     Dates: start: 20111101, end: 20111106
  15. TROXERUTIN [Concomitant]
     Indication: VENOUS INSUFFICIENCY
     Dosage: 180 MG, UNK
     Route: 048
  16. COUMARIN [Concomitant]
     Indication: VENOUS INSUFFICIENCY
     Dosage: 30 MG, UNK
     Route: 048
  17. ACETAMINOPHEN [Concomitant]
     Indication: PROPHYLAXIS
     Dosage: 500 MG, UNK
     Route: 048
     Dates: start: 20110530

REACTIONS (1)
  - ANAEMIA [None]
